FAERS Safety Report 17158120 (Version 1)
Quarter: 2019Q4

REPORT INFORMATION
  Report Type: Spontaneous
  Country: US (occurrence: US)
  Receive Date: 20191213
  Receipt Date: 20191213
  Transmission Date: 20200122
  Serious: Yes (Hospitalization, Other)
  Sender: FDA-Public Use
  Company Number: None

PATIENT
  Age: 43 Year
  Sex: Female
  Weight: 102 kg

DRUGS (1)
  1. MIRENA [Suspect]
     Active Substance: LEVONORGESTREL

REACTIONS (13)
  - Migraine [None]
  - Weight increased [None]
  - Oligomenorrhoea [None]
  - Depression [None]
  - Urticaria [None]
  - Mood swings [None]
  - Fluid retention [None]
  - Anxiety [None]
  - Back pain [None]
  - Abdominal pain [None]
  - Dyspareunia [None]
  - Embedded device [None]
  - Complication associated with device [None]

NARRATIVE: CASE EVENT DATE: 20181209
